FAERS Safety Report 6481734-4 (Version None)
Quarter: 2009Q4

REPORT INFORMATION
  Report Type: 
  Country: None (occurrence: None)
  Receive Date: 20091208
  Receipt Date: 20090324
  Transmission Date: 20100525
  Serious: No
  Sender: FDA-Public Use
  Company Number: US-AMGEN-KDL339888

PATIENT
  Sex: Female
  Weight: 53.6 kg

DRUGS (6)
  1. ENBREL [Suspect]
     Indication: PSORIASIS
     Dates: start: 20090312
  2. METHOTREXATE [Concomitant]
     Dates: start: 20070501
  3. FOLIC ACID [Concomitant]
     Dates: start: 20070501
  4. LEXAPRO [Concomitant]
  5. NORVASC [Concomitant]
  6. PRAVASTATIN [Concomitant]

REACTIONS (10)
  - CHILLS [None]
  - DIARRHOEA [None]
  - DIZZINESS [None]
  - FEELING OF BODY TEMPERATURE CHANGE [None]
  - INFLUENZA LIKE ILLNESS [None]
  - MALAISE [None]
  - MIGRAINE [None]
  - NAUSEA [None]
  - SWELLING FACE [None]
  - ULCER [None]
